FAERS Safety Report 9017791 (Version 2)
Quarter: 2013Q1

REPORT INFORMATION
  Report Type: Spontaneous
  Country: US (occurrence: US)
  Receive Date: 20130118
  Receipt Date: 20130204
  Transmission Date: 20140127
  Serious: Yes (Other)
  Sender: FDA-Public Use
  Company Number: US-009507513-1301USA005487

PATIENT
  Age: 51 Year
  Sex: Female

DRUGS (3)
  1. VICTRELIS [Suspect]
     Indication: HEPATITIS C
     Dosage: 800 MG, TID
     Route: 048
     Dates: start: 20121108, end: 20121208
  2. RIBAVIRIN [Suspect]
     Indication: HEPATITIS C
     Route: 048
  3. PEGASYS [Suspect]
     Indication: HEPATITIS C

REACTIONS (3)
  - Weight decreased [Unknown]
  - Thyroid disorder [Unknown]
  - Adverse event [Unknown]
